FAERS Safety Report 4813246-5 (Version None)
Quarter: 2005Q4

REPORT INFORMATION
  Report Type: 
  Country: None (occurrence: None)
  Receive Date: 20051028
  Receipt Date: 20050415
  Transmission Date: 20060501
  Serious: No
  Sender: FDA-Public Use
  Company Number: US-GLAXOSMITHKLINE-A0554393A

PATIENT
  Age: 54 Year
  Sex: Female

DRUGS (6)
  1. ADVAIR DISKUS 100/50 [Suspect]
     Indication: ASTHMA
     Dosage: 1PUFF TWICE PER DAY
     Route: 055
     Dates: start: 20050325
  2. ASPIRIN [Suspect]
     Route: 048
  3. MUCINEX [Concomitant]
  4. ALBUTEROL [Concomitant]
  5. SALINE SPRAY [Concomitant]
  6. FLONASE [Concomitant]

REACTIONS (2)
  - DYSPEPSIA [None]
  - HAEMATOCHEZIA [None]
